FAERS Safety Report 6593148-7 (Version None)
Quarter: 2010Q1

REPORT INFORMATION
  Report Type: 
  Country: None (occurrence: None)
  Receive Date: 20100222
  Receipt Date: 20100209
  Transmission Date: 20100710
  Serious: Yes (Hospitalization)
  Sender: FDA-Public Use
  Company Number: PHHY2010NO08856

PATIENT
  Sex: Male

DRUGS (4)
  1. COMTESS [Suspect]
     Indication: PARKINSON'S DISEASE
     Dosage: 200 MG/DAY
     Dates: start: 20090901, end: 20100113
  2. ARICEPT [Concomitant]
     Indication: DEMENTIA
     Dosage: 10 MG, QD
  3. SINEMET [Concomitant]
     Indication: PARKINSON'S DISEASE
     Dosage: 4 DF/DAY
  4. CIPRAMIL [Concomitant]
     Indication: DEPRESSION
     Dosage: 10 G, QD

REACTIONS (6)
  - ACTIVITIES OF DAILY LIVING IMPAIRED [None]
  - AKINESIA [None]
  - COGNITIVE DISORDER [None]
  - DISORIENTATION [None]
  - MOTOR DYSFUNCTION [None]
  - MYOCLONUS [None]
